FAERS Safety Report 8187449-9 (Version None)
Quarter: 2012Q1

REPORT INFORMATION
  Report Type: 
  Country: None (occurrence: None)
  Receive Date: 20120306
  Receipt Date: 20120229
  Transmission Date: 20120608
  Serious: Yes (Hospitalization)
  Sender: FDA-Public Use
  Company Number: ES-AMGEN-ESPSP2012011233

PATIENT
  Age: 85 Year
  Sex: Female

DRUGS (3)
  1. CALCIUM SUPPLEMENTS [Concomitant]
     Dosage: UNK
  2. PROLIA [Suspect]
     Indication: OSTEOPOROSIS
     Dosage: UNK
     Route: 058
     Dates: start: 20120214
  3. DIURETICS [Concomitant]

REACTIONS (5)
  - OEDEMA PERIPHERAL [None]
  - INFLAMMATION [None]
  - FATIGUE [None]
  - BONE FISSURE [None]
  - PALLOR [None]
